FAERS Safety Report 6774188-1 (Version None)
Quarter: 2010Q2

REPORT INFORMATION
  Report Type: 
  Country: None (occurrence: None)
  Receive Date: 20100617
  Receipt Date: 20100610
  Transmission Date: 20101027
  Serious: Yes (Hospitalization)
  Sender: FDA-Public Use
  Company Number: US-BAYER-201016269BCC

PATIENT
  Age: 84 Year
  Sex: Female
  Weight: 79 kg

DRUGS (7)
  1. ALEVE (CAPLET) [Suspect]
     Indication: SLEEP DISORDER
     Dosage: TOTAL DAILY DOSE: 220 MG  UNIT DOSE: 220 MG
     Route: 048
     Dates: start: 20100301, end: 20100301
  2. ALEVE (CAPLET) [Suspect]
     Dosage: TOTAL DAILY DOSE: 440 MG  UNIT DOSE: 220 MG
     Route: 048
     Dates: start: 20100510
  3. ASPIRIN [Concomitant]
     Route: 065
  4. MICARDIS [Concomitant]
     Route: 065
  5. DILTIAZEM [Concomitant]
     Route: 065
  6. PRILOSEC [Concomitant]
     Route: 065
  7. GERITOL [Concomitant]
     Dosage: TOTAL DAILY DOSE: 1 DF  UNIT DOSE: 1 DF
     Route: 065

REACTIONS (7)
  - APHAGIA [None]
  - DRUG HYPERSENSITIVITY [None]
  - GENERALISED ERYTHEMA [None]
  - OBSTRUCTIVE AIRWAYS DISORDER [None]
  - PRURITUS [None]
  - PRURITUS GENERALISED [None]
  - SCRATCH [None]
